FAERS Safety Report 8354001 (Version 2)
Quarter: 2013Q1

REPORT INFORMATION
  Report Type: Spontaneous
  Country: US (occurrence: US)
  Receive Date: 20120125
  Receipt Date: 20130301
  Transmission Date: 20140127
  Serious: Yes (Other)
  Sender: FDA-Public Use
  Company Number: US-ROCHE-1033130

PATIENT
  Sex: Female
  Weight: 70.37 kg

DRUGS (1)
  1. ACCUTANE [Suspect]
     Indication: ACNE
     Route: 065
     Dates: start: 19830101, end: 19831231

REACTIONS (5)
  - Inflammatory bowel disease [Unknown]
  - Depression [Unknown]
  - Injury [Not Recovered/Not Resolved]
  - Suicidal ideation [Unknown]
  - Bipolar disorder [Unknown]
